FAERS Safety Report 5534364-2 (Version None)
Quarter: 2007Q4

REPORT INFORMATION
  Report Type: 
  Country: None (occurrence: None)
  Receive Date: 20071205
  Receipt Date: 20071126
  Transmission Date: 20080405
  Serious: Yes (Hospitalization, Other)
  Sender: FDA-Public Use
  Company Number: PL-BAYER-200717033GPV

PATIENT
  Age: 25 Year
  Sex: Male

DRUGS (4)
  1. ACARBOSE [Suspect]
     Indication: DIABETES MELLITUS
     Route: 048
  2. INSULIN [Concomitant]
     Indication: DIABETES MELLITUS
     Route: 065
     Dates: start: 20000101
  3. PRESTARIUM [Concomitant]
     Indication: HYPERTENSION
     Route: 048
  4. DIUREZIN [Concomitant]
     Indication: HYPERTENSION
     Route: 065

REACTIONS (2)
  - BLOOD ALCOHOL INCREASED [None]
  - ROAD TRAFFIC ACCIDENT [None]
